FAERS Safety Report 13447009 (Version 2)
Quarter: 2019Q1

REPORT INFORMATION
  Report Type: Spontaneous
  Country: US (occurrence: US)
  Receive Date: 20170417
  Receipt Date: 20190117
  Transmission Date: 20190417
  Serious: No
  Sender: FDA-Public Use
  Company Number: US-PFIZER INC-2017161391

PATIENT
  Age: 67 Year
  Sex: Female

DRUGS (1)
  1. IBRANCE [Suspect]
     Active Substance: PALBOCICLIB
     Indication: BREAST CANCER FEMALE
     Dosage: 125 MG, UNK

REACTIONS (6)
  - Fatigue [Recovered/Resolved]
  - Sinusitis [Unknown]
  - Hypersensitivity [Unknown]
  - Malaise [Unknown]
  - Neoplasm progression [Unknown]
  - Alopecia [Unknown]
